FAERS Safety Report 8337326-5 (Version None)
Quarter: 2012Q2

REPORT INFORMATION
  Report Type: 
  Country: None (occurrence: None)
  Receive Date: 20120504
  Receipt Date: 20120426
  Transmission Date: 20120825
  Serious: Yes (Other)
  Sender: FDA-Public Use
  Company Number: US-ROXANE LABORATORIES, INC.-2012-RO-01133RO

PATIENT
  Age: 50 Year
  Sex: Male

DRUGS (1)
  1. ZOLPIDEM [Suspect]
     Dosage: 10 MG

REACTIONS (4)
  - CONFUSIONAL STATE [None]
  - AMNESIA [None]
  - AUTOMATISM [None]
  - ATAXIA [None]
